FAERS Safety Report 23593490 (Version 1)
Quarter: 2024Q1

REPORT INFORMATION
  Report Type: Spontaneous
  Country: US (occurrence: US)
  Receive Date: 20240304
  Receipt Date: 20240304
  Transmission Date: 20240410
  Serious: No
  Sender: FDA-Public Use
  Company Number: US-AMX-007650

PATIENT
  Sex: Male

DRUGS (5)
  1. RELYVRIO [Suspect]
     Active Substance: SODIUM PHENYLBUTYRATE\TAURURSODIOL
     Indication: Amyotrophic lateral sclerosis
     Dosage: 1 SACHET ONCE DAILY FOR 3 WEEKS THEN 1 SACHET TWICE DAILY
     Route: 048
  2. RILUZOLE [Suspect]
     Active Substance: RILUZOLE
     Indication: Product used for unknown indication
     Route: 065
  3. RADICAVA ORS [Suspect]
     Active Substance: EDARAVONE
     Indication: Amyotrophic lateral sclerosis
     Dosage: STANDARD DOSE
     Route: 048
     Dates: start: 20231201
  4. RADICAVA ORS [Suspect]
     Active Substance: EDARAVONE
     Indication: Amyotrophic lateral sclerosis
     Dosage: MAINTENANCE DOSE
     Route: 048
     Dates: start: 202312
  5. RADICAVA ORS [Suspect]
     Active Substance: EDARAVONE
     Indication: Amyotrophic lateral sclerosis
     Dosage: 10 OUT OF 14 DAYS THEN 14 DAYS OFF
     Route: 048
     Dates: start: 202311

REACTIONS (2)
  - Constipation [Unknown]
  - Abdominal discomfort [Unknown]
